FAERS Safety Report 10822005 (Version 1)
Quarter: 2015Q1

REPORT INFORMATION
  Report Type: Spontaneous
  Country: US (occurrence: None)
  Receive Date: 20150213
  Receipt Date: 20150213
  Transmission Date: 20150721
  Serious: Yes (Hospitalization, Other)
  Sender: FDA-Public Use
  Company Number: US-2015VAL000112

PATIENT
  Sex: Male

DRUGS (1)
  1. LOPRESSOR [Suspect]
     Active Substance: METOPROLOL TARTRATE
     Indication: PRODUCT USED FOR UNKNOWN INDICATION

REACTIONS (6)
  - Exercise lack of [None]
  - Joint dislocation [None]
  - Anxiety [None]
  - Foot fracture [None]
  - Fall [None]
  - Agitation [None]

NARRATIVE: CASE EVENT DATE: 201501
